FAERS Safety Report 24685344 (Version 1)
Quarter: 2024Q4

REPORT INFORMATION
  Report Type: Spontaneous
  Country: US (occurrence: None)
  Receive Date: 20241127
  Receipt Date: 20241127
  Transmission Date: 20250114
  Serious: Yes (Hospitalization)
  Sender: Public
  Company Number: None

PATIENT
  Age: 30 Year
  Sex: Male

DRUGS (1)
  1. THIAMINE HYDROCHLORIDE [Suspect]
     Active Substance: THIAMINE HYDROCHLORIDE
     Indication: Dehydration
     Dates: start: 20240723, end: 20240723

REACTIONS (7)
  - Anaphylactic reaction [None]
  - Tachycardia [None]
  - Hypotension [None]
  - Presyncope [None]
  - Pruritus [None]
  - Tachypnoea [None]
  - Urticaria [None]

NARRATIVE: CASE EVENT DATE: 20240723
